FAERS Safety Report 18858553 (Version 1)
Quarter: 2021Q1

REPORT INFORMATION
  Report Type: Spontaneous
  Country: US (occurrence: US)
  Receive Date: 20210208
  Receipt Date: 20210208
  Transmission Date: 20210420
  Serious: Yes (Hospitalization)
  Sender: FDA-Public Use
  Company Number: US-ABBVIE-21K-163-3723411-00

PATIENT
  Age: 22 Year
  Sex: Male
  Weight: 68.1 kg

DRUGS (1)
  1. HUMIRA [Suspect]
     Active Substance: ADALIMUMAB
     Indication: CROHN^S DISEASE
     Route: 058
     Dates: start: 202012

REACTIONS (6)
  - Pyrexia [Recovered/Resolved]
  - Kidney enlargement [Recovered/Resolved]
  - Incorrect dose administered [Unknown]
  - Abdominal pain upper [Recovered/Resolved]
  - Device issue [Unknown]
  - Crohn^s disease [Unknown]

NARRATIVE: CASE EVENT DATE: 202101
